FAERS Safety Report 18764651 (Version 1)
Quarter: 2021Q1

REPORT INFORMATION
  Report Type: Spontaneous
  Country: US (occurrence: US)
  Receive Date: 20210120
  Receipt Date: 20210120
  Transmission Date: 20210419
  Serious: No
  Sender: FDA-Public Use
  Company Number: US-IPSEN BIOPHARMACEUTICALS, INC.-2021-01166

PATIENT

DRUGS (1)
  1. DYSPORT [Suspect]
     Active Substance: ABOBOTULINUMTOXINA
     Indication: SKIN COSMETIC PROCEDURE
     Dosage: UNKNOWN
     Route: 065
     Dates: start: 20201214, end: 20201214

REACTIONS (2)
  - Eyelid ptosis [Unknown]
  - Adverse event [Unknown]

NARRATIVE: CASE EVENT DATE: 20210108
